FAERS Safety Report 12886291 (Version 3)
Quarter: 2016Q4

REPORT INFORMATION
  Report Type: Spontaneous
  Country: US (occurrence: US)
  Receive Date: 20161026
  Receipt Date: 20161110
  Transmission Date: 20170207
  Serious: No
  Sender: FDA-Public Use
  Company Number: US-PFIZER INC-2016493041

PATIENT
  Age: 48 Year
  Sex: Female
  Weight: 91 kg

DRUGS (12)
  1. CELEBREX [Concomitant]
     Active Substance: CELECOXIB
     Indication: PAIN
     Dosage: 200 MG, (ONCE OR TWICE A DAY, USUALLY ONCE A DAY)
  2. CELEBREX [Concomitant]
     Active Substance: CELECOXIB
     Dosage: 200 MG, AS NEEDED (1 CAP ORAL DAILY PRN FOR PAIN)
     Route: 048
  3. FLEXERIL [Concomitant]
     Active Substance: CYCLOBENZAPRINE HYDROCHLORIDE
     Indication: MUSCLE SPASMS
     Dosage: 10 MG, (1 TO 2 TIMES A DAY)
  4. BUPROPION. [Concomitant]
     Active Substance: BUPROPION
     Indication: DEPRESSION
     Dosage: 150 MG, 1X/DAY (IN THE MORNING)
  5. ADVAIR HFA [Concomitant]
     Active Substance: FLUTICASONE PROPIONATE\SALMETEROL XINAFOATE
     Dosage: UNK UNK, 2X/DAY (FLUTICASONE: 250UG; SALMETEROL: 50 UG)1 INHALATION
  6. PANTOPRAZOLE [Concomitant]
     Active Substance: PANTOPRAZOLE SODIUM
     Dosage: 40 MG, DAILY
     Route: 048
  7. LOVASTATIN. [Concomitant]
     Active Substance: LOVASTATIN
     Indication: BLOOD CHOLESTEROL INCREASED
     Dosage: 40 MG, 1X/DAY
  8. FLEXERIL [Concomitant]
     Active Substance: CYCLOBENZAPRINE HYDROCHLORIDE
     Dosage: 10 MG, 3X/DAY (TAKE ONE TABLET BY MOUTH THREE TIMES DAILY AS NEEDED FOR MUSCLE SPASM)
     Route: 048
  9. LYRICA [Suspect]
     Active Substance: PREGABALIN
     Indication: FIBROMYALGIA
     Dosage: UNK UNK, 3X/DAY
     Dates: start: 200907
  10. LYRICA [Suspect]
     Active Substance: PREGABALIN
     Dosage: (FOR 2 WEEKS)
     Dates: start: 2012
  11. RANITIDINE. [Concomitant]
     Active Substance: RANITIDINE
     Indication: ANTACID THERAPY
     Dosage: 300 MG, 1X/DAY (ONCE AT NIGHT)
  12. LYRICA [Suspect]
     Active Substance: PREGABALIN
     Dosage: 300 MG, (100 MG, 3 TABLETS) DAILY

REACTIONS (5)
  - Product use issue [Unknown]
  - Pain [Recovered/Resolved]
  - Feeling abnormal [Unknown]
  - Disturbance in attention [Not Recovered/Not Resolved]
  - Memory impairment [Unknown]

NARRATIVE: CASE EVENT DATE: 2009
